FAERS Safety Report 6703021-9 (Version None)
Quarter: 2010Q2

REPORT INFORMATION
  Report Type: 
  Country: None (occurrence: None)
  Receive Date: 20100429
  Receipt Date: 20100429
  Transmission Date: 20101027
  Serious: Yes (Disabling)
  Sender: FDA-Public Use
  Company Number: None

PATIENT
  Sex: Male
  Weight: 56.5 kg

DRUGS (13)
  1. NOVOSEVEN RT [Suspect]
     Indication: CARDIAC VALVE REPLACEMENT COMPLICATION
     Dosage: 5 MG ONCE IV
     Route: 042
     Dates: start: 20090922, end: 20090922
  2. NOVOSEVEN RT [Suspect]
     Indication: CORONARY ARTERY BYPASS
     Dosage: 5 MG ONCE IV
     Route: 042
     Dates: start: 20090922, end: 20090922
  3. AMLODIPINE [Concomitant]
  4. ASPIRIN [Concomitant]
  5. ATORVASTATIN [Concomitant]
  6. CAPTOPRIL [Concomitant]
  7. CARVEDILOL [Concomitant]
  8. DIGOXIN [Concomitant]
  9. FUROSEMIDE [Concomitant]
  10. LABETALOL HCL [Concomitant]
  11. PREDNISONE [Concomitant]
  12. TACROLIMUS [Concomitant]
  13. TRANEXAMIC ACID [Concomitant]

REACTIONS (4)
  - CARDIOVASCULAR DISORDER [None]
  - CEREBROVASCULAR ACCIDENT [None]
  - DISEASE COMPLICATION [None]
  - THROMBOSIS [None]
